FAERS Safety Report 8109583-1 (Version None)
Quarter: 2012Q1

REPORT INFORMATION
  Report Type: 
  Country: None (occurrence: None)
  Receive Date: 20120202
  Receipt Date: 20120117
  Transmission Date: 20120608
  Serious: No
  Sender: FDA-Public Use
  Company Number: US-AMGEN-USASP2012003383

PATIENT
  Age: 57 Year
  Sex: Female

DRUGS (1)
  1. ENBREL [Suspect]
     Indication: PSORIATIC ARTHROPATHY
     Dosage: 50 MG, QWK
     Dates: start: 20080901

REACTIONS (5)
  - LOCAL SWELLING [None]
  - NECK PAIN [None]
  - SIALOADENITIS [None]
  - SINUS CONGESTION [None]
  - PAIN IN JAW [None]
